FAERS Safety Report 21903302 (Version 1)
Quarter: 2023Q1

REPORT INFORMATION
  Report Type: Spontaneous
  Country: US (occurrence: US)
  Receive Date: 20230124
  Receipt Date: 20230124
  Transmission Date: 20230417
  Serious: No
  Sender: FDA-Public Use
  Company Number: US-SA-SAC20230123000182

PATIENT
  Sex: Female
  Weight: 79.365 kg

DRUGS (17)
  1. FABRAZYME [Suspect]
     Active Substance: AGALSIDASE BETA
     Indication: Fabry^s disease
     Dosage: 80 MG, QOW
     Route: 042
     Dates: start: 20200226
  2. HEPARIN [Concomitant]
     Active Substance: HEPARIN SODIUM
  3. CARBAMAZEPINE [Concomitant]
     Active Substance: CARBAMAZEPINE
  4. ZITHROMAX [Concomitant]
     Active Substance: AZITHROMYCIN DIHYDRATE
  5. EPINEPHRINE [Concomitant]
     Active Substance: EPINEPHRINE
  6. DULOXETINE HYDROCHLORIDE [Concomitant]
     Active Substance: DULOXETINE HYDROCHLORIDE
  7. STERILE WATER [Concomitant]
     Active Substance: WATER
  8. SODIUM CHLORIDE [Concomitant]
     Active Substance: SODIUM CHLORIDE
  9. PROMETHAZINE HYDROCHLORIDE [Concomitant]
     Active Substance: PROMETHAZINE HYDROCHLORIDE
  10. NORTRIPTYLINE HYDROCHLORIDE [Concomitant]
     Active Substance: NORTRIPTYLINE HYDROCHLORIDE
  11. LIDODERM [Concomitant]
     Active Substance: LIDOCAINE
  12. ZOFRAN [Concomitant]
     Active Substance: ONDANSETRON HYDROCHLORIDE
  13. WELLBUTRIN SR [Concomitant]
     Active Substance: BUPROPION HYDROCHLORIDE
  14. FOLIC ACID [Concomitant]
     Active Substance: FOLIC ACID
  15. LIDOCAINE [Concomitant]
     Active Substance: LIDOCAINE
  16. VITAMIN B COMPLEX [Concomitant]
     Active Substance: CYANOCOBALAMIN\DEXPANTHENOL\NIACINAMIDE\PYRIDOXINE HYDROCHLORIDE\RIBOFLAVIN 5^-PHOSPHATE SODIUM\THIA
  17. SODIUM CHLORIDE [Concomitant]
     Active Substance: SODIUM CHLORIDE

REACTIONS (1)
  - COVID-19 [Unknown]
